FAERS Safety Report 5064775-3 (Version None)
Quarter: 2006Q3

REPORT INFORMATION
  Report Type: 
  Country: None (occurrence: None)
  Receive Date: 20060728
  Receipt Date: 20060720
  Transmission Date: 20061208
  Serious: Yes (Other)
  Sender: FDA-Public Use
  Company Number: PHFR2006MT02299

PATIENT
  Age: 61 Year
  Sex: Male
  Weight: 75 kg

DRUGS (3)
  1. CATAFLAM [Suspect]
     Dosage: 50 MG, TID
     Route: 048
     Dates: start: 20060114, end: 20060128
  2. ENALAPRIL MALEATE [Concomitant]
     Route: 065
  3. ASPIRIN [Concomitant]
     Route: 048

REACTIONS (6)
  - BLOOD PRESSURE SYSTOLIC DECREASED [None]
  - CARDIAC PACEMAKER INSERTION [None]
  - DYSPNOEA EXERTIONAL [None]
  - FATIGUE [None]
  - MASS [None]
  - VENTRICULAR DYSFUNCTION [None]
